FAERS Safety Report 7455804-8 (Version None)
Quarter: 2011Q2

REPORT INFORMATION
  Report Type: 
  Country: None (occurrence: None)
  Receive Date: 20110503
  Receipt Date: 20110420
  Transmission Date: 20111010
  Serious: Yes (Hospitalization, Other)
  Sender: FDA-Public Use
  Company Number: PHEH2006US10419

PATIENT
  Sex: Female
  Weight: 55.328 kg

DRUGS (12)
  1. PREVACID [Concomitant]
  2. MINERALS NOS [Concomitant]
     Dosage: UNK, UNK
  3. AREDIA [Suspect]
     Indication: OSTEOPOROSIS
     Dosage: UNK, Q 3 MONTHS
     Route: 042
     Dates: start: 20020101, end: 20051007
  4. PRILOSEC [Concomitant]
  5. TORADOL [Concomitant]
     Dosage: 60 MG,
  6. HORMONES NOS [Concomitant]
  7. CALCIUM [Concomitant]
  8. COMPAZINE [Concomitant]
     Dosage: 10MG
  9. PROTONIX [Concomitant]
     Indication: GASTROINTESTINAL DISORDER
     Dosage: UNK, UNK
  10. VITAMINS NOS [Concomitant]
     Dosage: UNK, UNK
  11. ZOMETA [Suspect]
  12. CELEBREX [Concomitant]

REACTIONS (31)
  - GINGIVAL BLEEDING [None]
  - SYNOVIAL CYST [None]
  - GINGIVAL ERYTHEMA [None]
  - POLYP [None]
  - BLISTER [None]
  - GINGIVAL PAIN [None]
  - OEDEMA PERIPHERAL [None]
  - TENDERNESS [None]
  - ATROPHY [None]
  - ORAL HERPES [None]
  - OESOPHAGEAL HAEMORRHAGE [None]
  - ERYTHEMA [None]
  - DYSPHONIA [None]
  - EAR PAIN [None]
  - ARTHRITIS [None]
  - OSTEOPOROSIS [None]
  - IRRITABLE BOWEL SYNDROME [None]
  - EYE PAIN [None]
  - TOOTH DISORDER [None]
  - TOOTH INFECTION [None]
  - TOOTHACHE [None]
  - SKIN DISORDER [None]
  - ATROPHIC VULVOVAGINITIS [None]
  - MELANOCYTIC NAEVUS [None]
  - URETHRAL DISORDER [None]
  - DENTAL CARIES [None]
  - ANGINA PECTORIS [None]
  - OSTEONECROSIS OF JAW [None]
  - PERIODONTAL DISEASE [None]
  - ARRHYTHMIA [None]
  - HYPERTENSION [None]
